FAERS Safety Report 4990546-X (Version None)
Quarter: 2006Q2

REPORT INFORMATION
  Report Type: 
  Country: None (occurrence: None)
  Receive Date: 20060503
  Receipt Date: 20060425
  Transmission Date: 20061013
  Serious: Yes (Other)
  Sender: FDA-Public Use
  Company Number: US-JNJFOC-20060405729

PATIENT
  Sex: Male

DRUGS (5)
  1. ULTRAM [Suspect]
     Indication: OSTEOARTHRITIS
  2. HALCION [Concomitant]
     Indication: SLEEP DISORDER
  3. CEARITIA [Concomitant]
  4. FLONASE [Concomitant]
  5. ALLERGY SHOT [Concomitant]

REACTIONS (8)
  - ASTHENIA [None]
  - BLADDER PAIN [None]
  - ERYTHEMA [None]
  - FACIAL PAIN [None]
  - MYOCLONUS [None]
  - NEURALGIA [None]
  - OXYGEN SATURATION DECREASED [None]
  - PERINEAL PAIN [None]
